FAERS Safety Report 24650159 (Version 1)
Quarter: 2024Q4

REPORT INFORMATION
  Report Type: Spontaneous
  Country: GB (occurrence: GB)
  Receive Date: 20241122
  Receipt Date: 20241122
  Transmission Date: 20250115
  Serious: Yes (Other)
  Sender: TEVA
  Company Number: GB-MHRA-TPP9773938C9031235YC1731403724405

PATIENT
  Age: 77 Year
  Sex: Female
  Weight: 67 kg

DRUGS (20)
  1. TRIMETHOPRIM [Suspect]
     Active Substance: TRIMETHOPRIM
     Route: 065
  2. APIXABAN [Concomitant]
     Active Substance: APIXABAN
     Dosage: TPP YC - PLEASE RECLASSIFY
     Dates: start: 20231110
  3. BISOPROLOL [Concomitant]
     Active Substance: BISOPROLOL
     Dosage: TPP YC - PLEASE RECLASSIFY
     Dates: start: 20231110
  4. ATORVASTATIN [Concomitant]
     Active Substance: ATORVASTATIN
     Dosage: TPP YC - PLEASE RECLASSIFY
     Dates: start: 20231110
  5. EASYHALER [Concomitant]
     Dosage: TIME INTERVAL: AS NECESSARY: TPP YC - PLEASE RECLASSIFY
     Route: 055
     Dates: start: 20231110
  6. POTASSIUM BICARBONATE\SODIUM ALGINATE [Concomitant]
     Active Substance: POTASSIUM BICARBONATE\SODIUM ALGINATE
     Dosage: 10 ML 3 TO 4 TIMES A DAY AS NEEDED, TPP YC - PLEASE RECLASSIFY
     Dates: start: 20231110
  7. RABEPRAZOLE [Concomitant]
     Active Substance: RABEPRAZOLE
     Dosage: 1 OR 2 DAILY, TPP YC - PLEASE RECLASSIFY
     Dates: start: 20231110
  8. DOXYCYCLINE [Concomitant]
     Active Substance: DOXYCYCLINE
     Dosage: TWO NOW THEN ONE DAILY AS RESCUE PACK, TPP YC - PLEASE RECLASSIFY
     Dates: start: 20231110
  9. BECLOMETHASONE DIPROPIONATE\FORMOTEROL FUMARATE\GLYCOPYRROLATE [Concomitant]
     Active Substance: BECLOMETHASONE DIPROPIONATE\FORMOTEROL FUMARATE\GLYCOPYRROLATE
     Dosage: PUFFS, TPP YC - PLEASE RECLASSIFY
     Dates: start: 20231110, end: 20241002
  10. PREDNISOLONE [Concomitant]
     Active Substance: PREDNISOLONE
     Dosage: AS RESCUE MEDS, TPP YC - PLEASE RECLASSIFY
     Dates: start: 20231110
  11. GABAPENTIN [Concomitant]
     Active Substance: GABAPENTIN
     Dosage: TIME INTERVAL: 0.33333333 DAYS: INCREASE TO TWO 3 TIMES/DAY IF NO BETTER, TPP YC - PLEASE RECLASSIFY
     Dates: start: 20241004
  12. THEICAL D3 [Concomitant]
     Dosage: TPP YC - PLEASE RECLASSIFY
     Dates: start: 20231110
  13. CODEINE PHOSPHATE [Concomitant]
     Active Substance: CODEINE PHOSPHATE
     Dosage: TAKE ONE OR 2 UP TO 4 TIMES/DAY ALONG SIDE PARACETAMOL, TPP YC - PLEASE RECLASSIFY
     Dates: start: 20241004
  14. NITROFURANTOIN [Concomitant]
     Active Substance: NITROFURANTOIN
     Dosage: TPP YC - PLEASE RECLASSIFY
     Dates: start: 20241112
  15. AMITRIPTYLINE HYDROCHLORIDE [Concomitant]
     Active Substance: AMITRIPTYLINE HYDROCHLORIDE
     Dosage: TAKE ONE OR TWO AT NIGHT, TPP YC - PLEASE RECLASSIFY
     Dates: start: 20231110
  16. CARBOCYSTEINE [Concomitant]
     Active Substance: CARBOCYSTEINE
     Dosage: TIME INTERVAL: 0.33333333 DAYS: IF THERE IS AN EXAC..., TPP YC - PLEASE RECLASSIFY
     Dates: start: 20231110
  17. ESTRADIOL\NORETHINDRONE ACETATE [Concomitant]
     Active Substance: ESTRADIOL\NORETHINDRONE ACETATE
     Dosage: TPP YC - PLEASE RECLASSIFY
     Dates: start: 20231110, end: 20240923
  18. MEBEVERINE HYDROCHLORIDE [Concomitant]
     Active Substance: MEBEVERINE HYDROCHLORIDE
     Dosage: TIME INTERVAL: 0.33333333 DAYS: TPP YC - PLEASE RECLASSIFY
     Dates: start: 20240923
  19. TRELEGY ELLIPTA [Concomitant]
     Active Substance: FLUTICASONE FUROATE\UMECLIDINIUM BROMIDE\VILANTEROL TRIFENATATE
     Dosage: TPP YC - PLEASE RECLASSIFY
     Route: 055
     Dates: start: 20241028
  20. PANTOPRAZOLE [Concomitant]
     Active Substance: PANTOPRAZOLE
     Dosage: TAKE ONE TIWCE A DAY IF SYMPO..., TPP YC - PLEASE RECLASSIFY
     Dates: start: 20240923

REACTIONS (2)
  - Swelling [Recovered/Resolved]
  - Drug hypersensitivity [Unknown]
